FAERS Safety Report 5250746-0 (Version None)
Quarter: 2007Q1

REPORT INFORMATION
  Report Type: 
  Country: None (occurrence: None)
  Receive Date: 20070228
  Receipt Date: 20060630
  Transmission Date: 20070707
  Serious: No
  Sender: FDA-Public Use
  Company Number: US-GLAXOSMITHKLINE-A0610912A

PATIENT
  Age: 36 Year
  Sex: Female

DRUGS (5)
  1. LAMICTAL [Suspect]
     Dosage: 200MG PER DAY
     Route: 048
  2. SYNTHROID [Concomitant]
  3. LITHIUM CARBONATE [Concomitant]
  4. LEXAPRO [Concomitant]
  5. TEGRETOL [Concomitant]

REACTIONS (1)
  - RASH [None]
